FAERS Safety Report 17440037 (Version 4)
Quarter: 2023Q2

REPORT INFORMATION
  Report Type: Spontaneous
  Country: US (occurrence: US)
  Receive Date: 20200220
  Receipt Date: 20230628
  Transmission Date: 20230722
  Serious: Yes (Other)
  Sender: FDA-Public Use
  Company Number: US-PFIZER INC-2020070205

PATIENT
  Age: 82 Year
  Sex: Female
  Weight: 71.202 kg

DRUGS (2)
  1. XELJANZ XR [Suspect]
     Active Substance: TOFACITINIB CITRATE
     Indication: Rheumatoid arthritis
     Dosage: 11 MG, 1X/DAY
  2. XELJANZ XR [Suspect]
     Active Substance: TOFACITINIB CITRATE
     Dosage: 2 DF, 1X/DAY (1X 2 PILL PER DAY)

REACTIONS (6)
  - Mental impairment [Unknown]
  - Off label use [Unknown]
  - Feeling abnormal [Unknown]
  - Memory impairment [Unknown]
  - Dyspnoea [Unknown]
  - Confusional state [Unknown]

NARRATIVE: CASE EVENT DATE: 20190801
